FAERS Safety Report 23141954 (Version 3)
Quarter: 2023Q4

REPORT INFORMATION
  Report Type: Spontaneous
  Country: GB (occurrence: GB)
  Receive Date: 20231103
  Receipt Date: 20231212
  Transmission Date: 20240110
  Serious: Yes (Death, Hospitalization, Disabling, Other)
  Sender: FDA-Public Use
  Company Number: None

PATIENT
  Age: 83 Year
  Sex: Male

DRUGS (1)
  1. CAPECITABINE [Suspect]
     Active Substance: CAPECITABINE
     Indication: Colon cancer
     Dosage: 1 CYCLE (WE WERE NEVER ADVISED THAT MY FATHER WAS ON A REDUCED DOSE)
     Route: 048
     Dates: start: 20230822

REACTIONS (12)
  - Fatigue [Unknown]
  - Peripheral swelling [Unknown]
  - Mobility decreased [Unknown]
  - Urinary incontinence [Unknown]
  - Agitation [Unknown]
  - Confusional state [Unknown]
  - Hepatic enzyme increased [Unknown]
  - Joint swelling [Unknown]
  - Incorrect dose administered [Unknown]
  - Toxicity to various agents [Unknown]
  - Death [Fatal]
  - Hiccups [Unknown]

NARRATIVE: CASE EVENT DATE: 20230824
